FAERS Safety Report 4384467-3 (Version None)
Quarter: 2004Q2

REPORT INFORMATION
  Report Type: 
  Country: None (occurrence: None)
  Receive Date: 20040624
  Receipt Date: 20040617
  Transmission Date: 20050107
  Serious: Yes (Life-Threatening, Other)
  Sender: FDA-Public Use
  Company Number: JP-MERCK-0406USA01869

PATIENT
  Age: 66 Year
  Sex: Male

DRUGS (4)
  1. CEFAZOLIN [Concomitant]
     Route: 042
  2. PRIMAXIN [Concomitant]
     Route: 042
  3. PEPCID [Suspect]
     Route: 042
     Dates: start: 20040604, end: 20040612
  4. FOY [Concomitant]
     Route: 042
     Dates: start: 20040611, end: 20040614

REACTIONS (7)
  - CARDIAC ARREST [None]
  - CHEST PAIN [None]
  - ELECTROCARDIOGRAM QT PROLONGED [None]
  - MULTI-ORGAN FAILURE [None]
  - SEPSIS [None]
  - VENTRICULAR EXTRASYSTOLES [None]
  - VENTRICULAR TACHYCARDIA [None]
